FAERS Safety Report 4878615-6 (Version None)
Quarter: 2006Q1

REPORT INFORMATION
  Report Type: 
  Country: None (occurrence: None)
  Receive Date: 20060110
  Receipt Date: 20060110
  Transmission Date: 20060701
  Serious: Yes (Death, Hospitalization)
  Sender: FDA-Public Use
  Company Number: None

PATIENT
  Sex: Male
  Weight: 89 kg

DRUGS (4)
  1. GEMCITABINE HYDROCHLORIDE [Suspect]
     Indication: NEOPLASM
     Dosage: SEE IMAGE
     Dates: start: 20040630, end: 20040929
  2. GEMCITABINE HYDROCHLORIDE [Suspect]
     Indication: NEOPLASM
     Dosage: SEE IMAGE
     Dates: start: 20040922
  3. IRINOTECAN HCL [Suspect]
     Dosage: SEE IMAGE
     Dates: start: 20040630, end: 20040929
  4. ASPIRIN [Concomitant]

REACTIONS (3)
  - ABDOMINAL DISTENSION [None]
  - DECREASED APPETITE [None]
  - DYSPNOEA [None]
